FAERS Safety Report 4440062-9 (Version None)
Quarter: 2004Q3

REPORT INFORMATION
  Report Type: 
  Country: None (occurrence: None)
  Receive Date: 20040902
  Receipt Date: 20040625
  Transmission Date: 20050211
  Serious: Yes (Other)
  Sender: FDA-Public Use
  Company Number: FR-GLAXOSMITHKLINE-B0337371A

PATIENT
  Sex: Male

DRUGS (5)
  1. ZYBAN [Suspect]
     Dosage: 150MG PER DAY
     Route: 048
     Dates: start: 20040523, end: 20040523
  2. BETABLOCKER [Concomitant]
     Indication: ANGINA PECTORIS
     Route: 048
  3. ZOCOR [Concomitant]
     Route: 048
  4. ASPIRIN [Concomitant]
     Indication: ANGINA PECTORIS
     Dosage: 75MG PER DAY
     Route: 048
  5. STILNOX [Concomitant]
     Indication: INSOMNIA
     Route: 048

REACTIONS (1)
  - BLINDNESS TRANSIENT [None]
